FAERS Safety Report 19727950 (Version 1)
Quarter: 2021Q3

REPORT INFORMATION
  Report Type: Spontaneous
  Country: CA (occurrence: CA)
  Receive Date: 20210820
  Receipt Date: 20210820
  Transmission Date: 20211014
  Serious: Yes (Other)
  Sender: FDA-Public Use
  Company Number: CA-009507513-2108CAN004783

PATIENT
  Age: 60 Year
  Sex: Female
  Weight: 60 kg

DRUGS (9)
  1. CALCIUM CARBONATE. [Concomitant]
     Active Substance: CALCIUM CARBONATE
  2. RISEDRONATE SODIUM. [Concomitant]
     Active Substance: RISEDRONATE SODIUM
  3. APO SULFATRIM DS TAB [Suspect]
     Active Substance: SULFAMETHOXAZOLE\TRIMETHOPRIM
     Indication: PROPHYLAXIS
     Dosage: 1 DOSAGE FORM, 3 EVERY 1 WEEK
  4. MOXIFLOXACIN. [Concomitant]
     Active Substance: MOXIFLOXACIN
  5. PREDNISONE. [Concomitant]
     Active Substance: PREDNISONE
  6. DOXYCINE [Concomitant]
  7. KEYTRUDA [Suspect]
     Active Substance: PEMBROLIZUMAB
     Indication: LUNG ADENOCARCINOMA
     Dosage: 130 MILLIGRAM, Q3W
     Route: 042
  8. PRAMOX HC [HYDROCORTISONE;PRAMOCAINE HYDROCHLORIDE] [Concomitant]
  9. PULMICORT TURBUHALER [Concomitant]
     Active Substance: BUDESONIDE

REACTIONS (2)
  - Pharyngeal paraesthesia [Recovered/Resolved]
  - Rash morbilliform [Recovered/Resolved]
